FAERS Safety Report 7884317-4 (Version None)
Quarter: 2011Q4

REPORT INFORMATION
  Report Type: 
  Country: None (occurrence: None)
  Receive Date: 20111102
  Receipt Date: 20111023
  Transmission Date: 20120403
  Serious: Yes (Other)
  Sender: FDA-Public Use
  Company Number: IT-JNJFOC-20111010678

PATIENT
  Sex: Female

DRUGS (5)
  1. TRUVADA [Concomitant]
     Indication: HIV INFECTION
     Route: 065
  2. DARUNAVIR ETHANOLATE [Suspect]
     Indication: HIV INFECTION
     Route: 065
  3. RALTEGRAVIR [Concomitant]
     Indication: HIV INFECTION
     Route: 065
  4. COTRIM [Concomitant]
     Indication: ILL-DEFINED DISORDER
     Route: 065
  5. RITONAVIR [Concomitant]
     Indication: HIV INFECTION
     Route: 065

REACTIONS (1)
  - HEPATIC FUNCTION ABNORMAL [None]
